FAERS Safety Report 7594685-9 (Version None)
Quarter: 2011Q3

REPORT INFORMATION
  Report Type: 
  Country: None (occurrence: None)
  Receive Date: 20110707
  Receipt Date: 20110624
  Transmission Date: 20111222
  Serious: Yes (Hospitalization, Other)
  Sender: FDA-Public Use
  Company Number: GB-JNJFOC-20110503634

PATIENT
  Sex: Female
  Weight: 47 kg

DRUGS (10)
  1. METHOTREXATE [Concomitant]
     Dates: start: 20020522
  2. TIMOLOL [Concomitant]
     Indication: MIGRAINE
  3. REMICADE [Suspect]
     Indication: RHEUMATOID ARTHRITIS
     Route: 042
     Dates: start: 20020527, end: 20040214
  4. FOLIC ACID [Concomitant]
  5. PREDNISONE [Concomitant]
  6. ZOLMITRIPTAN [Concomitant]
     Indication: MIGRAINE
  7. FLUOXETINE HCL [Concomitant]
     Indication: DEPRESSION
  8. ACETAMINOPHEN [Concomitant]
  9. ETANERCEPT [Concomitant]
  10. DIHYDROCODEINE BITARTRATE INJ [Concomitant]

REACTIONS (1)
  - BREAST CANCER [None]
